FAERS Safety Report 19753556 (Version 1)
Quarter: 2021Q3

REPORT INFORMATION
  Report Type: Spontaneous
  Country: US (occurrence: US)
  Receive Date: 20210826
  Receipt Date: 20210826
  Transmission Date: 20211014
  Serious: No
  Sender: FDA-Public Use
  Company Number: US-HORIZON THERAPEUTICS-HZN-2021-004115

PATIENT
  Sex: Female

DRUGS (1)
  1. TEPEZZA [Suspect]
     Active Substance: TEPROTUMUMAB-TRBW
     Indication: TOXIC GOITRE
     Dosage: UNK
     Route: 065
     Dates: start: 20210415

REACTIONS (3)
  - Ocular hyperaemia [Unknown]
  - Visual impairment [Unknown]
  - Asthenia [Unknown]
